FAERS Safety Report 4835681-1 (Version None)
Quarter: 2005Q4

REPORT INFORMATION
  Report Type: 
  Country: None (occurrence: None)
  Receive Date: 20051123
  Receipt Date: 20051110
  Transmission Date: 20060501
  Serious: Yes (Other)
  Sender: FDA-Public Use
  Company Number: US-AVENTIS-200519438US

PATIENT
  Sex: Male

DRUGS (1)
  1. KETEK [Suspect]
     Dosage: DOSE: UNK
     Route: 048

REACTIONS (2)
  - CONVULSION [None]
  - LOSS OF CONSCIOUSNESS [None]
